FAERS Safety Report 5242250-0 (Version None)
Quarter: 2007Q1

REPORT INFORMATION
  Report Type: 
  Country: None (occurrence: None)
  Receive Date: 20070216
  Receipt Date: 20070216
  Transmission Date: 20070707
  Serious: Yes (Other)
  Sender: FDA-Public Use
  Company Number: None

PATIENT
  Age: 59 Year
  Sex: Female
  Weight: 61.2356 kg

DRUGS (4)
  1. MELOXICAM [Suspect]
     Indication: EXOSTOSIS
     Dosage: 15MG QD PO
     Route: 048
     Dates: start: 20070116, end: 20070120
  2. MELOXICAM [Suspect]
     Indication: TENDONITIS
     Dosage: 15MG QD PO
     Route: 048
     Dates: start: 20070116, end: 20070120
  3. MELOXICAM [Suspect]
     Indication: EXOSTOSIS
     Dosage: 15MG QD PO
     Route: 048
     Dates: start: 20070211, end: 20070214
  4. MELOXICAM [Suspect]
     Indication: TENDONITIS
     Dosage: 15MG QD PO
     Route: 048
     Dates: start: 20070211, end: 20070214

REACTIONS (4)
  - DRUG HYPERSENSITIVITY [None]
  - EYELID OEDEMA [None]
  - SKIN DISCOLOURATION [None]
  - SKIN EXFOLIATION [None]
